FAERS Safety Report 17458376 (Version 1)
Quarter: 2020Q1

REPORT INFORMATION
  Report Type: Spontaneous
  Country: GB (occurrence: GB)
  Receive Date: 20200225
  Receipt Date: 20200225
  Transmission Date: 20200409
  Serious: Yes (Other)
  Sender: FDA-Public Use
  Company Number: GB-MYLANLABS-2020M1019893

PATIENT
  Age: 55 Year
  Sex: Male
  Weight: 84 kg

DRUGS (7)
  1. LOSARTAN. [Concomitant]
     Active Substance: LOSARTAN
     Indication: HYPERTENSION
     Dosage: 1 DOSAGE FORM, QD(THIS I. )
     Dates: start: 20191223
  2. RAMIPRIL. [Suspect]
     Active Substance: RAMIPRIL
     Indication: PRODUCT USED FOR UNKNOWN INDICATION
     Dosage: 1.25 MILLIGRAM, QD
     Dates: start: 20191220
  3. SILKIS [Concomitant]
     Active Substance: CALCITRIOL
     Dosage: 2 DOSAGE FORM, QD(APPLY)
     Dates: start: 20191017, end: 20191018
  4. EUMOVATE [Concomitant]
     Active Substance: CLOBETASONE BUTYRATE
     Dosage: APPLY 1-2 TIMES/DAY
     Dates: start: 20191008, end: 20191105
  5. VENTOLIN [Concomitant]
     Active Substance: ALBUTEROL SULFATE
     Dosage: 2 DOSAGE FORM, PRN
     Route: 055
     Dates: start: 20181101
  6. FOSTAIR [Concomitant]
     Active Substance: BECLOMETHASONE\FORMOTEROL
     Dosage: 4 DOSAGE FORM, QD(PUFFS)
     Route: 055
     Dates: start: 20181101
  7. ZEROBASE                           /00103901/ [Concomitant]
     Dosage: UNK UNK, BID (APPLY TO ALL AFFECTED AREAS AT LEAST TWICE DAILY)
     Dates: start: 20190121

REACTIONS (3)
  - Urticaria [Recovered/Resolved]
  - Rash [Unknown]
  - Pruritus [Unknown]

NARRATIVE: CASE EVENT DATE: 20191223
